FAERS Safety Report 6779797-1 (Version None)
Quarter: 2010Q2

REPORT INFORMATION
  Report Type: 
  Country: None (occurrence: None)
  Receive Date: 20100618
  Receipt Date: 20100610
  Transmission Date: 20101027
  Serious: Yes (Other)
  Sender: FDA-Public Use
  Company Number: US-PFIZER INC-2010059406

PATIENT
  Age: 63 Year
  Sex: Male
  Weight: 97.506 kg

DRUGS (10)
  1. DETROL LA [Suspect]
     Indication: AUTOMATIC BLADDER
     Dosage: 0.4 MG, 1X/DAY
     Route: 048
     Dates: start: 20080101
  2. GABAPENTIN [Concomitant]
     Indication: FIBROMYALGIA
     Dosage: 600 MG, 4X/DAY
  3. OXYCODONE [Concomitant]
     Indication: FIBROMYALGIA
     Dosage: 10 MG, 5X/DAY
  4. CYCLOBENZAPRINE [Concomitant]
     Indication: FIBROMYALGIA
     Dosage: 10 MG, 3X/DAY
  5. CYMBALTA [Concomitant]
     Indication: FIBROMYALGIA
     Dosage: 180 MG, 1X/DAY
     Route: 048
  6. HYDROCHLOROTHIAZIDE [Concomitant]
     Indication: BLOOD PRESSURE
     Dosage: 12.5 MG, 1X/DAY
  7. AVODART [Concomitant]
     Indication: PROSTATOMEGALY
     Dosage: 0.5 MG, 1X/DAY
     Route: 048
  8. PROPRANOLOL [Concomitant]
     Dosage: UNK
  9. BENAZEPRIL [Concomitant]
     Dosage: UNK
  10. ZYRTEC [Concomitant]
     Dosage: UNK MG, UNK
     Route: 048

REACTIONS (2)
  - LIMB INJURY [None]
  - VISUAL IMPAIRMENT [None]
